FAERS Safety Report 7967211-X (Version None)
Quarter: 2011Q4

REPORT INFORMATION
  Report Type: 
  Country: None (occurrence: None)
  Receive Date: 20111209
  Receipt Date: 20111205
  Transmission Date: 20120403
  Serious: Yes (Life-Threatening, Hospitalization)
  Sender: FDA-Public Use
  Company Number: FR-JNJFOC-20111004931

PATIENT
  Sex: Male

DRUGS (3)
  1. IMOVANE [Suspect]
     Indication: INSOMNIA
     Route: 048
  2. ESCITALOPRAM OXALATE [Suspect]
     Indication: PSYCHOTIC DISORDER
     Route: 048
  3. RISPERDAL CONSTA [Suspect]
     Indication: SCHIZOPHRENIA
     Route: 030
     Dates: start: 20110908

REACTIONS (2)
  - PULMONARY EMBOLISM [None]
  - PSYCHOTIC DISORDER [None]
